FAERS Safety Report 5126199-X (Version None)
Quarter: 2006Q3

REPORT INFORMATION
  Report Type: 
  Country: None (occurrence: None)
  Receive Date: 20060824
  Receipt Date: 20060509
  Transmission Date: 20061208
  Serious: Yes (Other)
  Sender: FDA-Public Use
  Company Number: WAES 0605USA01724

PATIENT
  Sex: Female

DRUGS (2)
  1. VYTORIN [Suspect]
     Dosage: PO
     Route: 048
     Dates: end: 20060608
  2. LIPITOR [Concomitant]

REACTIONS (2)
  - RASH [None]
  - URTICARIA [None]
